FAERS Safety Report 23169932 (Version 1)
Quarter: 2023Q4

REPORT INFORMATION
  Report Type: Spontaneous
  Country: FR (occurrence: FR)
  Receive Date: 20231110
  Receipt Date: 20231110
  Transmission Date: 20240110
  Serious: Yes (Hospitalization)
  Sender: FDA-Public Use
  Company Number: None

PATIENT
  Age: 23 Year
  Sex: Female
  Weight: 73 kg

DRUGS (4)
  1. VOGALENE [Suspect]
     Active Substance: METOPIMAZINE
     Indication: Ear, nose and throat infection
     Dosage: UNSPECIFIED
     Dates: start: 20230313, end: 20230316
  2. AMOXICILLIN [Suspect]
     Active Substance: AMOXICILLIN
     Indication: Ear, nose and throat infection
     Dosage: UNSPECIFIED
     Dates: start: 20230313, end: 20230316
  3. TENOXICAM [Suspect]
     Active Substance: TENOXICAM
     Indication: Ear, nose and throat infection
     Dosage: UNSPECIFIED
     Dates: start: 20230313, end: 20230316
  4. ANTIPYRINE\LIDOCAINE [Suspect]
     Active Substance: ANTIPYRINE\LIDOCAINE
     Indication: Ear, nose and throat infection
     Dosage: UNSPECIFIED  , SOLUTION FOR EAR INSTILLATION
     Dates: start: 20230313, end: 20230316

REACTIONS (2)
  - Angioedema [Recovered/Resolved]
  - Hypersensitivity [Recovered/Resolved]

NARRATIVE: CASE EVENT DATE: 20230316
